FAERS Safety Report 5654207-6 (Version None)
Quarter: 2008Q1

REPORT INFORMATION
  Report Type: 
  Country: None (occurrence: None)
  Receive Date: 20080306
  Receipt Date: 20080208
  Transmission Date: 20080703
  Serious: No
  Sender: FDA-Public Use
  Company Number: US-BOEHRINGER INGELHEIM GMBH, GERMANY-2008-BP-02179PF

PATIENT
  Sex: Female

DRUGS (2)
  1. SPIRIVA [Suspect]
     Route: 055
  2. CHANTIX [Suspect]
     Indication: SMOKING CESSATION THERAPY

REACTIONS (3)
  - BLOOD PRESSURE ABNORMAL [None]
  - DYSPNOEA [None]
  - LUNG DISORDER [None]
